FAERS Safety Report 4683139-5 (Version None)
Quarter: 2005Q2

REPORT INFORMATION
  Report Type: 
  Country: None (occurrence: None)
  Receive Date: 20050602
  Receipt Date: 20050331
  Transmission Date: 20051028
  Serious: No
  Sender: FDA-Public Use
  Company Number: USA050394572

PATIENT
  Age: 74 Year
  Sex: Male

DRUGS (3)
  1. CYMBALTA [Suspect]
     Indication: NEUROPATHY PERIPHERAL
     Dosage: 60 MG
     Dates: start: 20050301
  2. DIGOXIN [Concomitant]
  3. ASPIRIN [Concomitant]

REACTIONS (4)
  - BURNING SENSATION [None]
  - DRUG EFFECT DECREASED [None]
  - HYPOAESTHESIA [None]
  - PAIN [None]
